FAERS Safety Report 10414972 (Version 3)
Quarter: 2014Q4

REPORT INFORMATION
  Report Type: Spontaneous
  Country: US (occurrence: None)
  Receive Date: 20140604
  Receipt Date: 20141205
  Transmission Date: 20150528
  Serious: No
  Sender: FDA-Public Use
  Company Number: 163-POMAL-14032470

PATIENT
  Age: 69 Year
  Sex: Female
  Weight: 72.6 kg

DRUGS (12)
  1. AVELOX (MOXIFLOXACIN HYDROCHLORIDE) (UNKNOWN) [Concomitant]
  2. PRILOSEC (OMEPRAZOLE) (UNKNOWN) [Concomitant]
  3. TYLENOL (PARACETAMOL) (UNKNOWN) [Concomitant]
  4. POMALYST [Suspect]
     Active Substance: POMALIDOMIDE
     Indication: PLASMA CELL MYELOMA
     Dosage: 4 MG, 14 IN 21 D, PO
     Route: 048
     Dates: start: 20131218
  5. ASPRIN [Concomitant]
     Active Substance: ASPIRIN
  6. VELCADE [Concomitant]
     Active Substance: BORTEZOMIB
  7. KLOR-CON (POTASSIUM CHLORIDE) [Concomitant]
  8. DEXAMETHASONE. [Concomitant]
     Active Substance: DEXAMETHASONE
  9. PRAVASTATIN [Concomitant]
     Active Substance: PRAVASTATIN\PRAVASTATIN SODIUM
  10. LISINOPRIL. [Concomitant]
     Active Substance: LISINOPRIL
  11. LOTEMAX (LOTEPREDNOL ETABONATE) [Concomitant]
  12. ACYCLOVIR. [Concomitant]
     Active Substance: ACYCLOVIR

REACTIONS (3)
  - Tremor [None]
  - Bronchitis [None]
  - Eye irritation [None]

NARRATIVE: CASE EVENT DATE: 20140512
